FAERS Safety Report 15738379 (Version 2)
Quarter: 2018Q4

REPORT INFORMATION
  Report Type: Report from Study
  Country: US (occurrence: US)
  Receive Date: 20181219
  Receipt Date: 20181228
  Transmission Date: 20190205
  Serious: Yes (Hospitalization, Other)
  Sender: FDA-Public Use
  Company Number: US-GILEAD-2018-0380832

PATIENT
  Age: 63 Year
  Sex: Female
  Weight: 85.5 kg

DRUGS (1)
  1. AMBRISENTAN [Suspect]
     Active Substance: AMBRISENTAN
     Indication: PRODUCT USED FOR UNKNOWN INDICATION
     Dosage: 10 MG
     Route: 065
     Dates: start: 20140421

REACTIONS (8)
  - Seizure [Unknown]
  - Joint swelling [Unknown]
  - Meningitis [Recovered/Resolved]
  - Pyrexia [Unknown]
  - Feeling abnormal [Unknown]
  - Coma [Unknown]
  - Vomiting [Unknown]
  - Skin discolouration [Unknown]

NARRATIVE: CASE EVENT DATE: 20181114
